FAERS Safety Report 6343865-9 (Version None)
Quarter: 2009Q3

REPORT INFORMATION
  Report Type: 
  Country: None (occurrence: None)
  Receive Date: 20090908
  Receipt Date: 20090902
  Transmission Date: 20100115
  Serious: Yes (Hospitalization)
  Sender: FDA-Public Use
  Company Number: JP-AVENTIS-200912476JP

PATIENT
  Age: 61 Year
  Sex: Female

DRUGS (2)
  1. RILUTEK [Suspect]
     Indication: AMYOTROPHIC LATERAL SCLEROSIS
     Route: 048
     Dates: start: 20090723, end: 20090816
  2. METHYCOBAL                         /00056201/ [Concomitant]

REACTIONS (1)
  - PEMPHIGOID [None]
